FAERS Safety Report 5800978-5 (Version None)
Quarter: 2008Q3

REPORT INFORMATION
  Report Type: 
  Country: None (occurrence: None)
  Receive Date: 20080702
  Receipt Date: 20080616
  Transmission Date: 20090109
  Serious: Yes (Other)
  Sender: FDA-Public Use
  Company Number: 2008AL007086

PATIENT
  Age: 83 Year
  Sex: Female
  Weight: 39.4629 kg

DRUGS (3)
  1. DIGOXIN [Suspect]
     Indication: ATRIAL FIBRILLATION
     Dosage: 0.125-0.25MG DAILY, PO
     Route: 048
     Dates: end: 20080423
  2. COUMADIN [Concomitant]
  3. DILTIAZEM HCL [Concomitant]

REACTIONS (6)
  - DIZZINESS [None]
  - DYSPNOEA [None]
  - FATIGUE [None]
  - GENERAL PHYSICAL HEALTH DETERIORATION [None]
  - LETHARGY [None]
  - THERAPEUTIC AGENT TOXICITY [None]
